FAERS Safety Report 8579591-5 (Version None)
Quarter: 2012Q3

REPORT INFORMATION
  Report Type: 
  Country: None (occurrence: None)
  Receive Date: 20120808
  Receipt Date: 20120801
  Transmission Date: 20120928
  Serious: Yes (Other)
  Sender: FDA-Public Use
  Company Number: US-JNJFOC-20120708299

PATIENT
  Sex: Female
  Weight: 50.35 kg

DRUGS (7)
  1. CALCIUM [Concomitant]
     Route: 065
  2. SIMPONI [Suspect]
     Indication: RHEUMATOID ARTHRITIS
     Route: 058
     Dates: start: 20100101
  3. VITAMIN D [Concomitant]
     Route: 065
  4. LOVAZA [Concomitant]
     Route: 065
  5. VITAMIN E (TOCOPHERYL ACETATE) [Concomitant]
     Route: 065
  6. VIT B COMPLEX [Concomitant]
     Route: 065
  7. ASCORBIC ACID [Concomitant]
     Route: 065

REACTIONS (3)
  - TREMOR [None]
  - NERVOUSNESS [None]
  - NECK PAIN [None]
